FAERS Safety Report 25816512 (Version 1)
Quarter: 2025Q3

REPORT INFORMATION
  Report Type: Spontaneous
  Country: EU (occurrence: EU)
  Receive Date: 20250918
  Receipt Date: 20250918
  Transmission Date: 20251020
  Serious: Yes (Other)
  Sender: DR REDDYS
  Company Number: EU-RDY-DEU/2025/09/013922

PATIENT
  Age: 18 Year
  Sex: Female
  Weight: 46 kg

DRUGS (3)
  1. LAMOTRIGINE [Suspect]
     Active Substance: LAMOTRIGINE
     Indication: Juvenile myoclonic epilepsy
     Route: 048
     Dates: start: 202306, end: 202402
  2. LEVETIRACETAM [Suspect]
     Active Substance: LEVETIRACETAM
     Indication: Juvenile myoclonic epilepsy
     Route: 048
     Dates: start: 202306, end: 202402
  3. VALPROATE SODIUM [Suspect]
     Active Substance: VALPROATE SODIUM
     Indication: Juvenile myoclonic epilepsy
     Dosage: UNTIL WEEK 6
     Route: 048
     Dates: start: 202306, end: 202307

REACTIONS (1)
  - Exposure during pregnancy [Unknown]
